FAERS Safety Report 19163634 (Version 2)
Quarter: 2021Q3

REPORT INFORMATION
  Report Type: Spontaneous
  Country: AR (occurrence: AR)
  Receive Date: 20210421
  Receipt Date: 20210729
  Transmission Date: 20211014
  Serious: Yes (Other)
  Sender: FDA-Public Use
  Company Number: AR-ACCORD-222937

PATIENT
  Age: 59 Year
  Sex: Male

DRUGS (7)
  1. BASILIXIMAB [Interacting]
     Active Substance: BASILIXIMAB
     Indication: IMMUNOSUPPRESSION
     Dates: start: 201911
  2. PREDNISONE. [Interacting]
     Active Substance: PREDNISONE
     Indication: IMMUNOSUPPRESSION
     Dates: start: 201911
  3. MYCOPHENOLATE [Concomitant]
     Active Substance: MYCOPHENOLIC ACID
     Indication: IMMUNOSUPPRESSION
     Dates: start: 2019
  4. TACROLIMUS. [Suspect]
     Active Substance: TACROLIMUS
     Indication: IMMUNOSUPPRESSION
     Dosage: 1MG/WEEK IN 2019, MODIFIED TO 1.5 MG/WEEK IN NOV?2019
     Dates: start: 2017
  5. DARUNAVIR/COBICISTAT [Interacting]
     Active Substance: COBICISTAT\DARUNAVIR ETHANOLATE
     Indication: ANTIRETROVIRAL THERAPY
     Dosage: 800/150 MG QD
  6. EVEROLIMUS. [Interacting]
     Active Substance: EVEROLIMUS
     Indication: IMMUNOSUPPRESSION
     Dosage: 0.5MG/2 DAYS
     Dates: start: 2019
  7. DOLUTEGRAVIR [Interacting]
     Active Substance: DOLUTEGRAVIR
     Indication: ANTIRETROVIRAL THERAPY

REACTIONS (6)
  - Proteinuria [Recovered/Resolved]
  - Renal tubular necrosis [Recovered/Resolved]
  - Renal impairment [Unknown]
  - Drug interaction [Recovered/Resolved]
  - Kaposi^s sarcoma [Unknown]
  - Blood creatinine increased [Recovered/Resolved]

NARRATIVE: CASE EVENT DATE: 2019
